FAERS Safety Report 14446256 (Version 1)
Quarter: 2018Q1

REPORT INFORMATION
  Report Type: Spontaneous
  Country: PT (occurrence: PT)
  Receive Date: 20180126
  Receipt Date: 20180126
  Transmission Date: 20180509
  Serious: Yes (Other)
  Sender: FDA-Public Use
  Company Number: PT-CONCORDIA PHARMACEUTICALS INC.-GSH201801-000318

PATIENT
  Age: 19 Year
  Sex: Female

DRUGS (2)
  1. HYDROXYCHLOROQUINE [Suspect]
     Active Substance: HYDROXYCHLOROQUINE
     Indication: ENDOCARDITIS Q FEVER
     Route: 048
  2. DOXYCYCLINE SALT NOT SPECIFIED [Suspect]
     Active Substance: DOXYCYCLINE
     Indication: ENDOCARDITIS Q FEVER
     Route: 048

REACTIONS (7)
  - Disease recurrence [Recovering/Resolving]
  - Off label use [Unknown]
  - Dyspnoea [Unknown]
  - Heart valve incompetence [Unknown]
  - Endocarditis Q fever [Recovering/Resolving]
  - Pyrexia [Unknown]
  - Inappropriate schedule of drug administration [Unknown]
